FAERS Safety Report 9466375 (Version 1)
Quarter: 2013Q3

REPORT INFORMATION
  Report Type: Spontaneous
  Country: GB (occurrence: GB)
  Receive Date: 20130820
  Receipt Date: 20130820
  Transmission Date: 20140515
  Serious: Yes (Hospitalization)
  Sender: FDA-Public Use
  Company Number: GB-TEVA-425684ISR

PATIENT
  Age: 72 Year
  Sex: Female

DRUGS (13)
  1. TRAMADOL [Suspect]
     Dosage: 150 MILLIGRAM DAILY; 50 MG, TID
  2. SIMVASTATIN [Suspect]
     Dosage: 40 MILLIGRAM DAILY; 40 MG, QD
  3. BUMETANIDE [Suspect]
     Dosage: 7 MILLIGRAM DAILY; 7 MG, QD
  4. METYRAPONE [Suspect]
     Indication: CUSHING^S SYNDROME
     Dosage: UNKNOWN
     Dates: start: 20080522, end: 20080524
  5. METYRAPONE [Suspect]
     Dosage: 1 GRAM DAILY; 1 G, QD
     Dates: start: 20080525
  6. ISOSORBIDE MONONITRATE [Concomitant]
     Dosage: 40 MILLIGRAM DAILY; 20 MG, BID
  7. LOSARTAN [Concomitant]
     Dosage: 100 MILLIGRAM DAILY; 100 MG, QD
  8. BENDROFLUMETHIAZIDE [Concomitant]
     Dosage: 2.5 MILLIGRAM DAILY; 2.5 MG, QD
  9. CARBOCISTEINE [Concomitant]
     Dosage: 450 MILLIGRAM DAILY; 150 MG, TID
  10. DIGOXIN [Concomitant]
     Dosage: 125 MILLIGRAM DAILY; 125 MG, QD
  11. WARFARIN [Concomitant]
     Dosage: UNKNOWN
  12. DILTIAZEM [Concomitant]
     Dosage: UNKNOWN
  13. MIXTARD [Concomitant]
     Dosage: UNKNOWN

REACTIONS (2)
  - Oedema peripheral [Recovered/Resolved]
  - Dyspnoea [Recovered/Resolved with Sequelae]
